FAERS Safety Report 23948829 (Version 1)
Quarter: 2024Q2

REPORT INFORMATION
  Report Type: Spontaneous
  Country: US (occurrence: US)
  Receive Date: 20240607
  Receipt Date: 20240607
  Transmission Date: 20240716
  Serious: Yes (Hospitalization, Other)
  Sender: FDA-Public Use
  Company Number: US-STERISCIENCE B.V.-2024-ST-000752

PATIENT
  Age: 77 Year
  Sex: Female

DRUGS (4)
  1. AMPICILLIN [Suspect]
     Active Substance: AMPICILLIN
     Indication: Enterococcal infection
     Dosage: UNK
     Route: 065
  2. AMPICILLIN [Suspect]
     Active Substance: AMPICILLIN
     Indication: Prosthetic valve endocarditis
  3. DAPTOMYCIN [Suspect]
     Active Substance: DAPTOMYCIN
     Indication: Enterococcal infection
     Dosage: UNK
     Route: 065
  4. DAPTOMYCIN [Suspect]
     Active Substance: DAPTOMYCIN
     Indication: Prosthetic valve endocarditis

REACTIONS (4)
  - Aorto-bronchial fistula [Unknown]
  - Myocardiac abscess [Unknown]
  - Abscess rupture [Unknown]
  - Drug ineffective [Unknown]
